FAERS Safety Report 18340559 (Version 2)
Quarter: 2020Q4

REPORT INFORMATION
  Report Type: Not Available
  Country: US (occurrence: US)
  Receive Date: 20201002
  Receipt Date: 20201110
  Transmission Date: 20210113
  Serious: No
  Sender: FDA-Public Use
  Company Number: US-NEUROCRINE BIOSCIENCES INC.-2020NBI03484

PATIENT
  Age: 22 Year
  Sex: Female

DRUGS (6)
  1. CELEXA [Concomitant]
     Active Substance: CITALOPRAM HYDROBROMIDE
  2. NEURONTIN [Concomitant]
     Active Substance: GABAPENTIN
  3. ATIVAN [Concomitant]
     Active Substance: LORAZEPAM
  4. BACLOFEN. [Concomitant]
     Active Substance: BACLOFEN
  5. INGREZZA [Suspect]
     Active Substance: VALBENAZINE
     Indication: TARDIVE DYSKINESIA
     Route: 048
     Dates: start: 20200915, end: 20200919
  6. MVI [Concomitant]
     Active Substance: VITAMINS

REACTIONS (3)
  - Somnolence [Unknown]
  - Migraine [Unknown]
  - Drug ineffective [Unknown]

NARRATIVE: CASE EVENT DATE: 202009
